FAERS Safety Report 13053272 (Version 1)
Quarter: 2016Q4

REPORT INFORMATION
  Report Type: Spontaneous
  Country: US (occurrence: US)
  Receive Date: 20161221
  Receipt Date: 20161221
  Transmission Date: 20170207
  Serious: Yes (Hospitalization)
  Sender: FDA-Public Use
  Company Number: None

PATIENT
  Age: 77 Year
  Sex: Male
  Weight: 55.4 kg

DRUGS (1)
  1. OLANZAPINE. [Suspect]
     Active Substance: OLANZAPINE
     Indication: DELIRIUM
     Route: 048
     Dates: start: 20161206, end: 20161218

REACTIONS (4)
  - Agitation [None]
  - Pyrexia [None]
  - Respiratory depression [None]
  - Hypertension [None]

NARRATIVE: CASE EVENT DATE: 20161218
